FAERS Safety Report 6582431-7 (Version None)
Quarter: 2010Q1

REPORT INFORMATION
  Report Type: 
  Country: None (occurrence: None)
  Receive Date: 20100216
  Receipt Date: 20100205
  Transmission Date: 20100710
  Serious: Yes (Life-Threatening, Hospitalization)
  Sender: FDA-Public Use
  Company Number: -SANOFI-AVENTIS-2010SA003398

PATIENT
  Age: 31 Year
  Sex: Female
  Weight: 44 kg

DRUGS (2)
  1. LEFLUNOMIDE [Suspect]
     Indication: RHEUMATOID ARTHRITIS
     Route: 048
     Dates: start: 20091201, end: 20091203
  2. LEFLUNOMIDE [Suspect]
     Route: 048
     Dates: start: 20091204, end: 20091221

REACTIONS (10)
  - COLITIS [None]
  - DIARRHOEA [None]
  - HEPATITIS [None]
  - KERATITIS [None]
  - MUCOSAL INFLAMMATION [None]
  - PNEUMOTHORAX [None]
  - RASH GENERALISED [None]
  - RESPIRATORY DISTRESS [None]
  - STEVENS-JOHNSON SYNDROME [None]
  - SYSTEMIC INFLAMMATORY RESPONSE SYNDROME [None]
